FAERS Safety Report 17256819 (Version 1)
Quarter: 2020Q1

REPORT INFORMATION
  Report Type: Spontaneous
  Country: US (occurrence: US)
  Receive Date: 20200110
  Receipt Date: 20200110
  Transmission Date: 20200409
  Serious: Yes (Other)
  Sender: FDA-Public Use
  Company Number: US-MYLANLABS-2020M1002517

PATIENT
  Age: 4 Decade
  Sex: Male

DRUGS (10)
  1. MELATONIN [Interacting]
     Active Substance: MELATONIN
     Dosage: 9 MILLIGRAM, QD
     Route: 065
  2. VITAMIN D3 [Concomitant]
     Active Substance: CHOLECALCIFEROL
     Indication: PRODUCT USED FOR UNKNOWN INDICATION
     Dosage: 2000 INTERNATIONAL UNIT, QD
     Route: 065
  3. PROPRANOLOL [Interacting]
     Active Substance: PROPRANOLOL HYDROCHLORIDE
     Indication: PRODUCT USED FOR UNKNOWN INDICATION
     Dosage: 40 MILLIGRAM, QD
     Route: 065
  4. MELATONIN [Interacting]
     Active Substance: MELATONIN
     Dosage: 6 MILLIGRAM, QD
     Route: 065
  5. PROPRANOLOL [Interacting]
     Active Substance: PROPRANOLOL HYDROCHLORIDE
     Dosage: SUMMER 2016
     Route: 065
     Dates: start: 2016
  6. MELATONIN [Interacting]
     Active Substance: MELATONIN
     Indication: PRODUCT USED FOR UNKNOWN INDICATION
     Dosage: 3 MILLIGRAM, QD
     Route: 065
  7. MIRTAZAPINE. [Suspect]
     Active Substance: MIRTAZAPINE
     Indication: SCHIZOAFFECTIVE DISORDER BIPOLAR TYPE
     Dosage: 60 MILLIGRAM, QD
     Route: 065
  8. OLANZAPINE. [Suspect]
     Active Substance: OLANZAPINE
     Indication: SCHIZOAFFECTIVE DISORDER BIPOLAR TYPE
     Dosage: 30 MILLIGRAM, QD
     Route: 065
  9. MELATONIN [Interacting]
     Active Substance: MELATONIN
     Dosage: 12 MILLIGRAM, QD
     Route: 065
  10. N-ACETYLCYSTEINE [Concomitant]
     Active Substance: ACETYLCYSTEINE
     Indication: PRODUCT USED FOR UNKNOWN INDICATION
     Dosage: 2400 MILLIGRAM, QD
     Route: 065

REACTIONS (3)
  - Drug interaction [Unknown]
  - Drug level decreased [Unknown]
  - Tardive dyskinesia [Recovered/Resolved]
